FAERS Safety Report 7936706-7 (Version None)
Quarter: 2011Q4

REPORT INFORMATION
  Report Type: 
  Country: None (occurrence: None)
  Receive Date: 20111123
  Receipt Date: 20111111
  Transmission Date: 20120403
  Serious: Yes (Hospitalization)
  Sender: FDA-Public Use
  Company Number: JP-GENZYME-RENA-1001365

PATIENT
  Sex: Female
  Weight: 59.3 kg

DRUGS (5)
  1. ALFAROL [Suspect]
     Dosage: 0.5 MCG, QD
     Route: 048
     Dates: start: 20090917, end: 20111021
  2. CINACALCET HYDROCHLORIDE [Suspect]
     Indication: PRODUCT USED FOR UNKNOWN INDICATION
     Dosage: 25 MG, QD
     Route: 048
     Dates: start: 20110831
  3. RENAGEL [Suspect]
     Indication: HYPERPHOSPHATAEMIA
     Dosage: 0.5 G, TID
     Route: 048
     Dates: start: 20110810, end: 20111021
  4. ALFAROL [Suspect]
     Indication: HYPOCALCAEMIA
     Dosage: 0.25 MCG, QD
     Route: 048
     Dates: start: 20090813
  5. CINACALCET HYDROCHLORIDE [Suspect]
     Dosage: 25 MG, BID
     Route: 048
     Dates: start: 20110914, end: 20111012

REACTIONS (1)
  - LIVER DISORDER [None]
